FAERS Safety Report 9829321 (Version 3)
Quarter: 2014Q2

REPORT INFORMATION
  Report Type: Report from Study
  Country: JP (occurrence: JP)
  Receive Date: 20140120
  Receipt Date: 20140417
  Transmission Date: 20141212
  Serious: Yes (Other)
  Sender: FDA-Public Use
  Company Number: JP-ROCHE-1114683

PATIENT
  Age: 60 Year
  Sex: Male

DRUGS (9)
  1. PEG-INTERFERON ALFA 2A [Suspect]
     Indication: HEPATIC CIRRHOSIS
     Route: 058
     Dates: start: 20120228, end: 20120306
  2. PEG-INTERFERON ALFA 2A [Suspect]
     Indication: HEPATIC CIRRHOSIS
     Route: 058
     Dates: start: 20120313, end: 20120507
  3. PEG-INTERFERON ALFA 2A [Suspect]
     Indication: HEPATIC CIRRHOSIS
     Route: 058
     Dates: start: 20120529, end: 20130430
  4. RIBAVIRIN [Suspect]
     Indication: HEPATIC CIRRHOSIS
     Dosage: DOSE REDUCED
     Route: 048
     Dates: start: 20120228, end: 20120402
  5. RIBAVIRIN [Suspect]
     Indication: HEPATIC CIRRHOSIS
     Route: 048
     Dates: start: 20120403, end: 20120514
  6. RIBAVIRIN [Suspect]
     Indication: HEPATIC CIRRHOSIS
     Route: 048
     Dates: start: 20120529, end: 20130506
  7. NEXIUM [Concomitant]
     Route: 048
     Dates: start: 20120519, end: 20120709
  8. FERROMIA [Concomitant]
     Indication: PROPHYLAXIS
     Route: 048
     Dates: start: 20120519
  9. OMEPRAL [Concomitant]
     Indication: PROPHYLAXIS
     Route: 048
     Dates: start: 20120710

REACTIONS (3)
  - Oesophageal haemorrhage [Recovered/Resolved]
  - Pancytopenia [Recovered/Resolved]
  - Haemoglobin decreased [Recovered/Resolved]
